FAERS Safety Report 4531452-4 (Version None)
Quarter: 2004Q4

REPORT INFORMATION
  Report Type: 
  Country: None (occurrence: None)
  Receive Date: 20041216
  Receipt Date: 20041206
  Transmission Date: 20050328
  Serious: Yes (Other)
  Sender: FDA-Public Use
  Company Number: STA-AE-04-MTX-617

PATIENT
  Age: 54 Year
  Sex: Female

DRUGS (14)
  1. MEXATE [Suspect]
     Indication: RHEUMATOID ARTHRITIS
     Dosage: 17.5 MG 1 WK, ORAL
     Route: 048
     Dates: start: 20010809, end: 20041105
  2. ABATACEPT [Suspect]
     Dosage: IV
     Route: 042
     Dates: start: 20040331, end: 20040917
  3. FOLIC ACID [Concomitant]
  4. FOSAMAX [Concomitant]
  5. NAPROXEN [Concomitant]
  6. ASPIRIN [Concomitant]
  7. ACIPHEX [Concomitant]
  8. SYNTHROID [Concomitant]
  9. MULTIVITAMIN (MULTIPLE VITAMINS) [Concomitant]
  10. ALBUTEROL [Concomitant]
  11. TYLENOL W/ CODEINE NO. 3 [Concomitant]
  12. NIFEDIPINE ER (NIFEDIPINE) [Concomitant]
  13. CALCIUM + VITAMIN D (CALCIUM + VITAMIN D) [Concomitant]
  14. FOSINOPRIL SODIUM [Concomitant]

REACTIONS (6)
  - DRUG TOXICITY [None]
  - GASTROOESOPHAGEAL REFLUX DISEASE [None]
  - GRANULOMA [None]
  - INFLAMMATION [None]
  - INTERSTITIAL LUNG DISEASE [None]
  - LUNG INFILTRATION [None]
